FAERS Safety Report 25805368 (Version 2)
Quarter: 2025Q3

REPORT INFORMATION
  Report Type: Spontaneous
  Country: EU (occurrence: EU)
  Receive Date: 20250916
  Receipt Date: 20250923
  Transmission Date: 20251021
  Serious: Yes (Other)
  Sender: ABBVIE
  Company Number: EU-ABBVIE-6458287

PATIENT
  Age: 82 Year
  Sex: Female

DRUGS (6)
  1. VENETOCLAX [Suspect]
     Active Substance: VENETOCLAX
     Indication: Chronic lymphocytic leukaemia
     Route: 048
     Dates: start: 202006, end: 202012
  2. VENETOCLAX [Suspect]
     Active Substance: VENETOCLAX
     Indication: Chronic lymphocytic leukaemia
     Route: 048
     Dates: start: 202103, end: 202207
  3. ACALABRUTINIB [Suspect]
     Active Substance: ACALABRUTINIB
     Indication: Product used for unknown indication
     Route: 065
  4. ZANUBRUTINIB [Concomitant]
     Active Substance: ZANUBRUTINIB
     Indication: Product used for unknown indication
  5. RITUXIMAB [Suspect]
     Active Substance: RITUXIMAB
     Indication: Product used for unknown indication
     Route: 065
     Dates: start: 202103, end: 202108
  6. RITUXIMAB [Suspect]
     Active Substance: RITUXIMAB
     Indication: Product used for unknown indication
     Route: 065
     Dates: start: 202006, end: 202012

REACTIONS (8)
  - Acute kidney injury [Not Recovered/Not Resolved]
  - Tumour lysis syndrome [Unknown]
  - Drug tolerance decreased [Unknown]
  - Coronavirus infection [Unknown]
  - Headache [Unknown]
  - Lymphocytosis [Unknown]
  - Haemolytic anaemia [Unknown]
  - Splenomegaly [Unknown]

NARRATIVE: CASE EVENT DATE: 20201201
